FAERS Safety Report 7087949-9 (Version None)
Quarter: 2010Q4

REPORT INFORMATION
  Report Type: 
  Country: None (occurrence: None)
  Receive Date: 20101108
  Receipt Date: 20101027
  Transmission Date: 20110411
  Serious: Yes (Other)
  Sender: FDA-Public Use
  Company Number: BR-US-EMD SERONO, INC.-7019486

PATIENT
  Sex: Female

DRUGS (5)
  1. REBIF [Suspect]
     Indication: RELAPSING-REMITTING MULTIPLE SCLEROSIS
     Route: 058
     Dates: start: 20100401, end: 20100901
  2. REBIF [Suspect]
     Route: 058
     Dates: start: 20100901
  3. AMITRIPTYLINE HCL [Concomitant]
  4. FARMATHON [Concomitant]
  5. PARACETAMOL [Concomitant]

REACTIONS (15)
  - ANAEMIA [None]
  - BACK PAIN [None]
  - DIZZINESS [None]
  - FATIGUE [None]
  - GASTRIC DISORDER [None]
  - HEADACHE [None]
  - HYPOAESTHESIA [None]
  - HYPOKINESIA [None]
  - INFLUENZA LIKE ILLNESS [None]
  - INJECTION SITE ERYTHEMA [None]
  - INTENTIONAL OVERDOSE [None]
  - MYALGIA [None]
  - PAIN [None]
  - PERICARDIAL EFFUSION [None]
  - SENSATION OF HEAVINESS [None]
